FAERS Safety Report 8313899-3 (Version None)
Quarter: 2012Q2

REPORT INFORMATION
  Report Type: 
  Country: None (occurrence: None)
  Receive Date: 20120426
  Receipt Date: 20120426
  Transmission Date: 20120825
  Serious: No
  Sender: FDA-Public Use
  Company Number: None

PATIENT
  Age: 52 Year
  Sex: Female
  Weight: 86.182 kg

DRUGS (2)
  1. HYDROCHLOROTHIAZIDE [Suspect]
     Indication: NEPHROLITHIASIS
     Dosage: ONE TABLET DAILY
     Dates: start: 20000601, end: 20120104
  2. HYDROCHLOROTHIAZIDE [Concomitant]

REACTIONS (5)
  - SLEEP DISORDER [None]
  - ABASIA [None]
  - PAIN [None]
  - NEUROPATHY PERIPHERAL [None]
  - BURNING SENSATION [None]
